FAERS Safety Report 6779746-6 (Version None)
Quarter: 2010Q2

REPORT INFORMATION
  Report Type: 
  Country: None (occurrence: None)
  Receive Date: 20100618
  Receipt Date: 20100607
  Transmission Date: 20101027
  Serious: Yes (Other)
  Sender: FDA-Public Use
  Company Number: CA-JNJFOC-20100603481

PATIENT
  Sex: Female

DRUGS (6)
  1. SIMPONI [Suspect]
     Indication: PSORIATIC ARTHROPATHY
     Route: 058
  2. NPH INSULIN [Concomitant]
     Indication: DIABETES MELLITUS
  3. NPH INSULIN [Concomitant]
  4. METHOTREXATE [Concomitant]
     Route: 058
  5. LOSEC I.V. [Concomitant]
     Route: 048
  6. DIAMICRON [Concomitant]
     Route: 048

REACTIONS (1)
  - BLOOD GLUCOSE INCREASED [None]
